FAERS Safety Report 18876123 (Version 2)
Quarter: 2021Q2

REPORT INFORMATION
  Report Type: Spontaneous
  Country: US (occurrence: US)
  Receive Date: 20210210
  Receipt Date: 20210412
  Transmission Date: 20210717
  Serious: Yes (Hospitalization)
  Sender: FDA-Public Use
  Company Number: US-ALLERGAN-2105410US

PATIENT
  Sex: Male

DRUGS (1)
  1. BOTOX [Suspect]
     Active Substance: ONABOTULINUMTOXINA
     Indication: PRODUCT USED FOR UNKNOWN INDICATION
     Dosage: UNK UNK, SINGLE
     Dates: start: 20201205, end: 20201205

REACTIONS (12)
  - Loss of consciousness [Recovered/Resolved]
  - Botulism [Recovering/Resolving]
  - Jugular vein distension [Unknown]
  - General physical condition abnormal [Not Recovered/Not Resolved]
  - Toxicity to various agents [Unknown]
  - Amnesia [Not Recovered/Not Resolved]
  - Fall [Recovered/Resolved]
  - Pain [Unknown]
  - Bladder disorder [Not Recovered/Not Resolved]
  - Catatonia [Unknown]
  - Neck pain [Unknown]
  - Coma [Recovered/Resolved]

NARRATIVE: CASE EVENT DATE: 20201205
